FAERS Safety Report 6166719-X (Version None)
Quarter: 2009Q2

REPORT INFORMATION
  Report Type: 
  Country: None (occurrence: None)
  Receive Date: 20090423
  Receipt Date: 20090423
  Transmission Date: 20091009
  Serious: Yes (Other)
  Sender: FDA-Public Use
  Company Number: None

PATIENT
  Age: 50 Year
  Sex: Male
  Weight: 84.8226 kg

DRUGS (1)
  1. ALDARA [Suspect]
     Indication: ACTINIC KERATOSIS
     Dosage: 1 PACKET TWICE WEEKLY TOP OVER 7 MONTHS
     Route: 061
     Dates: start: 20080825, end: 20090414

REACTIONS (8)
  - INFLUENZA LIKE ILLNESS [None]
  - LOCAL SWELLING [None]
  - LYMPHADENOPATHY [None]
  - MALAISE [None]
  - SCAB [None]
  - SKIN DISCOLOURATION [None]
  - SKIN EXFOLIATION [None]
  - SWELLING [None]
